FAERS Safety Report 11079917 (Version 1)
Quarter: 2015Q2

REPORT INFORMATION
  Report Type: Spontaneous
  Country: FR (occurrence: FR)
  Receive Date: 20150430
  Receipt Date: 20150430
  Transmission Date: 20150821
  Serious: Yes (Hospitalization)
  Sender: FDA-Public Use
  Company Number: FR-SA-2015SA051219

PATIENT
  Age: 63 Year
  Sex: Female
  Weight: 64.1 kg

DRUGS (3)
  1. LOVENOX [Suspect]
     Active Substance: ENOXAPARIN SODIUM
     Indication: VENOUS THROMBOSIS LIMB
     Route: 058
     Dates: start: 20150404, end: 20150407
  2. CALCIPARINE [Concomitant]
     Active Substance: HEPARIN CALCIUM
     Dosage: STERNGTH: 0.7 ML
     Dates: start: 20150403, end: 20150404
  3. HEPARIN [Concomitant]
     Active Substance: HEPARIN SODIUM
     Dosage: NON FRACTIONATED HEPARIN 1200 IU/H ELECTRIC SYRINE (OBJECTIVE 0.2 - 0.4)
     Dates: start: 20150403, end: 20150403

REACTIONS (4)
  - Compartment syndrome [Recovered/Resolved]
  - Haemorrhagic anaemia [Recovered/Resolved]
  - Acute kidney injury [Not Recovered/Not Resolved]
  - Shock haemorrhagic [Recovered/Resolved]

NARRATIVE: CASE EVENT DATE: 20150407
